FAERS Safety Report 17726622 (Version 2)
Quarter: 2020Q2

REPORT INFORMATION
  Report Type: Spontaneous
  Country: US (occurrence: US)
  Receive Date: 20200430
  Receipt Date: 20200514
  Transmission Date: 20200714
  Serious: No
  Sender: FDA-Public Use
  Company Number: US-TEVA-2020-US-1227432

PATIENT
  Age: 68 Year
  Sex: Female

DRUGS (2)
  1. OCALIVA [Suspect]
     Active Substance: OBETICHOLIC ACID
     Indication: PRIMARY BILIARY CHOLANGITIS
     Route: 048
     Dates: start: 20200225, end: 202003
  2. PROPRANOLOL [Suspect]
     Active Substance: PROPRANOLOL HYDROCHLORIDE
     Indication: PRODUCT USED FOR UNKNOWN INDICATION
     Route: 048
     Dates: start: 20200226

REACTIONS (8)
  - Irritability [Unknown]
  - Headache [Unknown]
  - Insomnia [Unknown]
  - Blood pressure decreased [Unknown]
  - Cough [Unknown]
  - Diarrhoea [Unknown]
  - Pruritus [Unknown]
  - Gait disturbance [Unknown]

NARRATIVE: CASE EVENT DATE: 202002
